FAERS Safety Report 5468677-X (Version None)
Quarter: 2007Q3

REPORT INFORMATION
  Report Type: 
  Country: None (occurrence: None)
  Receive Date: 20070926
  Receipt Date: 20070917
  Transmission Date: 20080115
  Serious: Yes (Hospitalization)
  Sender: FDA-Public Use
  Company Number: GB-PFIZER INC-2006060205

PATIENT
  Sex: Female

DRUGS (10)
  1. SILDENAFIL (PAH) [Suspect]
     Indication: PULMONARY HYPERTENSION
     Route: 048
  2. EPOPROSTENOL SODIUM [Suspect]
     Indication: CONNECTIVE TISSUE DISORDER
     Dosage: TEXT:UNIT DOSE 8.2MG/KG/MIN
     Route: 042
  3. EPOPROSTENOL SODIUM [Suspect]
     Indication: PULMONARY HYPERTENSION
  4. FUROSEMIDE [Concomitant]
     Route: 048
  5. SPIRONOLACTONE [Concomitant]
     Route: 048
  6. WARFARIN SODIUM [Concomitant]
     Route: 048
     Dates: start: 20050401, end: 20060429
  7. PARACETAMOL [Concomitant]
     Route: 048
  8. DIHYDROCODEINE BITARTRATE INJ [Concomitant]
     Route: 048
  9. LANSOPRAZOLE [Concomitant]
     Route: 048
     Dates: start: 20050801, end: 20060429
  10. CITALOPRAM HYDROBROMIDE [Concomitant]
     Route: 048

REACTIONS (3)
  - GASTRIC ULCER [None]
  - GASTROINTESTINAL HAEMORRHAGE [None]
  - OESOPHAGEAL ULCER [None]
